FAERS Safety Report 18971264 (Version 1)
Quarter: 2021Q1

REPORT INFORMATION
  Report Type: Spontaneous
  Country: DE (occurrence: DE)
  Receive Date: 20210305
  Receipt Date: 20210305
  Transmission Date: 20210420
  Serious: Yes (Death, Other)
  Sender: FDA-Public Use
  Company Number: DE-SUN PHARMACEUTICAL INDUSTRIES LTD-2021RR-284083

PATIENT
  Age: 59 Year
  Sex: Male

DRUGS (15)
  1. DOXORUBICIN [Suspect]
     Active Substance: DOXORUBICIN
     Indication: IMMUNOCHEMOTHERAPY
     Dosage: UNK
     Route: 065
  2. TOCILIZUMAB. [Concomitant]
     Active Substance: TOCILIZUMAB
     Indication: PYREXIA
     Dosage: 8 MILLIMOLE PER KILOGRAM
     Route: 065
  3. METHYLPREDNISOLONE. [Suspect]
     Active Substance: METHYLPREDNISOLONE
     Indication: IMMUNE EFFECTOR CELL-ASSOCIATED NEUROTOXICITY SYNDROME
     Dosage: 1000 MILLIGRAM, DAILY
  4. AMPHOTERICIN B LIPOSOME [Suspect]
     Active Substance: AMPHOTERICIN B
     Indication: FUNGAL INFECTION
     Dosage: UNK
     Route: 065
  5. AMPHOTERICIN B LIPOSOME [Suspect]
     Active Substance: AMPHOTERICIN B
     Indication: CANDIDA INFECTION
  6. MEROPENEM. [Suspect]
     Active Substance: MEROPENEM
     Indication: ANTI-INFECTIVE THERAPY
     Dosage: UNK
     Route: 065
  7. PREDNISOLONE. [Suspect]
     Active Substance: PREDNISOLONE
     Indication: IMMUNOCHEMOTHERAPY
     Dosage: UNK
     Route: 065
  8. VINCRISTINE [Suspect]
     Active Substance: VINCRISTINE
     Indication: IMMUNOCHEMOTHERAPY
     Dosage: UNK
     Route: 065
  9. AMPHOTERICIN B LIPOSOME [Suspect]
     Active Substance: AMPHOTERICIN B
     Indication: ESCHERICHIA SEPSIS
  10. COTRIMOXAZOLE [Suspect]
     Active Substance: SULFAMETHOXAZOLE\TRIMETHOPRIM
     Indication: PROPHYLAXIS
     Dosage: UNK
     Route: 065
  11. CYCLOPHOSPHAMIDE. [Suspect]
     Active Substance: CYCLOPHOSPHAMIDE
     Indication: IMMUNOCHEMOTHERAPY
     Dosage: UNK
     Route: 065
  12. FLUDARABINE/CYCLOPHOSPHAMIDE [Suspect]
     Active Substance: CYCLOPHOSPHAMIDE\FLUDARABINE
     Indication: IMMUNOMODULATORY THERAPY
     Dosage: ON DAYS ?5 TO ?3
     Route: 065
  13. ACYCLOVIR. [Concomitant]
     Active Substance: ACYCLOVIR
     Indication: PROPHYLAXIS
     Dosage: UNK
     Route: 065
  14. POSACONAZOLE [Suspect]
     Active Substance: POSACONAZOLE
     Indication: ANTI-INFECTIVE THERAPY
     Dosage: UNK
     Route: 065
  15. RITUXIMAB. [Suspect]
     Active Substance: RITUXIMAB
     Indication: IMMUNOCHEMOTHERAPY
     Dosage: UNK
     Route: 065

REACTIONS (7)
  - Escherichia sepsis [Recovered/Resolved]
  - Drug level below therapeutic [Unknown]
  - Candida infection [Fatal]
  - Neutropenia [Unknown]
  - Drug ineffective [Unknown]
  - Aspergillus infection [Fatal]
  - Pancytopenia [Unknown]
